FAERS Safety Report 12043910 (Version 1)
Quarter: 2016Q1

REPORT INFORMATION
  Report Type: Spontaneous
  Country: US (occurrence: US)
  Receive Date: 20160208
  Receipt Date: 20160208
  Transmission Date: 20160526
  Serious: No
  Sender: FDA-Public Use
  Company Number: US-WATSON-2016-00291

PATIENT
  Age: 87 Year
  Sex: Female

DRUGS (2)
  1. WARFARIN [Concomitant]
     Active Substance: WARFARIN
     Indication: PROPHYLAXIS
     Dosage: UNK, UNKNOWN
     Route: 065
  2. CANASA [Suspect]
     Active Substance: MESALAMINE
     Indication: COLITIS ULCERATIVE
     Dosage: 1000 MG, UNK
     Route: 054
     Dates: start: 20151123, end: 20151130

REACTIONS (3)
  - Joint swelling [Not Recovered/Not Resolved]
  - Urine output decreased [Recovered/Resolved]
  - Peripheral swelling [Not Recovered/Not Resolved]

NARRATIVE: CASE EVENT DATE: 20151123
